FAERS Safety Report 20264679 (Version 1)
Quarter: 2021Q4

REPORT INFORMATION
  Report Type: Spontaneous
  Country: US (occurrence: US)
  Receive Date: 20211231
  Receipt Date: 20211231
  Transmission Date: 20220303
  Serious: No
  Sender: FDA-Public Use
  Company Number: US-SA-SAC20211228000275

PATIENT
  Age: 80 Year
  Sex: Female

DRUGS (1)
  1. DUPIXENT [Suspect]
     Active Substance: DUPILUMAB
     Indication: Asthma
     Dosage: 300 MG, QOW
     Route: 058
     Dates: start: 202110

REACTIONS (7)
  - Eye disorder [Unknown]
  - Condition aggravated [Unknown]
  - Visual impairment [Unknown]
  - Intraocular pressure decreased [Unknown]
  - Hypersensitivity [Unknown]
  - Product use issue [Unknown]
  - Product use in unapproved indication [Unknown]
